FAERS Safety Report 4538160-4 (Version None)
Quarter: 2004Q4

REPORT INFORMATION
  Report Type: 
  Country: None (occurrence: None)
  Receive Date: 20041221
  Receipt Date: 20041208
  Transmission Date: 20050328
  Serious: Yes (Disabling)
  Sender: FDA-Public Use
  Company Number: 2004AP06076

PATIENT
  Age: 77 Year
  Sex: Female
  Weight: 38 kg

DRUGS (10)
  1. DIPRIVAN [Suspect]
     Indication: GENERAL ANAESTHESIA
     Dosage: 410 MG DAILY IV
     Route: 042
     Dates: start: 20041125, end: 20041125
  2. CEFAZOLIN [Suspect]
     Indication: INFECTION PROPHYLAXIS
     Dosage: 1 G DAILY IVD
     Route: 041
     Dates: start: 20041125, end: 20041125
  3. FENTANEST [Concomitant]
  4. MUSCULAX [Concomitant]
  5. EPHEDRIN [Concomitant]
  6. PERDIPINE [Concomitant]
  7. VOLTAREN [Concomitant]
  8. PRIMPERAN [Concomitant]
  9. ATARAX-X [Concomitant]
  10. PREDOPA [Concomitant]

REACTIONS (11)
  - ANURIA [None]
  - ASPARTATE AMINOTRANSFERASE INCREASED [None]
  - BLOOD LACTATE DEHYDROGENASE INCREASED [None]
  - BLOOD PRESSURE FLUCTUATION [None]
  - HAEMODIALYSIS [None]
  - HAEMOLYSIS [None]
  - HAEMORRHAGE URINARY TRACT [None]
  - MYOGLOBINAEMIA [None]
  - POST PROCEDURAL COMPLICATION [None]
  - RENAL FAILURE ACUTE [None]
  - RENAL TUBULAR DISORDER [None]
